FAERS Safety Report 8969273 (Version 1)
Quarter: 2012Q4

REPORT INFORMATION
  Report Type: Spontaneous
  Country: US (occurrence: None)
  Receive Date: 20121210
  Receipt Date: 20121210
  Transmission Date: 20130627
  Serious: Yes (Hospitalization)
  Sender: FDA-Public Use
  Company Number: A1/ADR/AMLO/3-S-NL

PATIENT
  Age: 69 Year
  Sex: Female
  Weight: 89.81 kg

DRUGS (3)
  1. AMLODIPINE [Suspect]
     Indication: BLOOD PRESSURE HIGH
     Dosage: 7 years
     Route: 048
  2. METOPROLOL [Concomitant]
  3. HYDORCHLOROTHIAZIDE [Concomitant]

REACTIONS (3)
  - Heart rate increased [None]
  - Product substitution issue [None]
  - Hypertension [None]
